FAERS Safety Report 5782485-1 (Version None)
Quarter: 2008Q2

REPORT INFORMATION
  Report Type: 
  Country: None (occurrence: None)
  Receive Date: 20080623
  Receipt Date: 20080612
  Transmission Date: 20081010
  Serious: Yes (Hospitalization, Other)
  Sender: FDA-Public Use
  Company Number: PHHY2008JP09888

PATIENT

DRUGS (11)
  1. CYCLOSPORINE [Suspect]
     Indication: APLASTIC ANAEMIA
     Dosage: UNK
     Dates: start: 20021101, end: 20040901
  2. CYCLOSPORINE [Suspect]
     Dosage: UNK
     Dates: start: 20040901, end: 20070101
  3. CYCLOSPORINE [Suspect]
     Dosage: UNK
     Dates: start: 20070101, end: 20070701
  4. ANTITHYMOCYTE IMMUNOGLOBULIN [Concomitant]
     Indication: APLASTIC ANAEMIA
     Dosage: UNK
     Dates: start: 20021101
  5. BLOOD TRANSFUSION, AUXILIARY PRODUCTS [Concomitant]
     Indication: APLASTIC ANAEMIA
     Dosage: UNK
     Dates: start: 20041101
  6. RITUXIMAB [Concomitant]
     Dosage: UNK
     Dates: start: 20070801
  7. CYCLOPHOSPHAMIDE [Concomitant]
     Dosage: UNK
     Dates: start: 20070801
  8. DOXORUBICIN HCL [Concomitant]
     Dosage: UNK
     Dates: start: 20070801
  9. VINCRISTINE [Concomitant]
     Dosage: UNK
     Dates: start: 20070801
  10. PREDNISOLONE [Concomitant]
     Dosage: UNK
     Dates: start: 20070801
  11. RADIATION THERAPY [Concomitant]
     Dosage: UNK
     Dates: start: 20070801

REACTIONS (11)
  - ABDOMINAL DISTENSION [None]
  - APLASTIC ANAEMIA [None]
  - BONE MARROW TUMOUR CELL INFILTRATION [None]
  - DIFFUSE LARGE B-CELL LYMPHOMA [None]
  - LOWER EXTREMITY MASS [None]
  - MASS [None]
  - OEDEMA PERIPHERAL [None]
  - PANCREATIC MASS [None]
  - RASH [None]
  - SPLEEN DISORDER [None]
  - SURGERY [None]
